FAERS Safety Report 12106487 (Version 2)
Quarter: 2016Q2

REPORT INFORMATION
  Report Type: Report from Study
  Country: US (occurrence: US)
  Receive Date: 20160223
  Receipt Date: 20160418
  Transmission Date: 20160815
  Serious: Yes (Other)
  Sender: FDA-Public Use
  Company Number: US-GILEAD-2016-0199792

PATIENT
  Age: 51 Year
  Sex: Female

DRUGS (2)
  1. AMBRISENTAN [Suspect]
     Active Substance: AMBRISENTAN
     Indication: PRODUCT USED FOR UNKNOWN INDICATION
     Dosage: 10 MG, QD
     Route: 065
     Dates: start: 20121207
  2. TYVASO [Concomitant]
     Active Substance: TREPROSTINIL

REACTIONS (3)
  - Nephrolithiasis [Unknown]
  - Cystitis [Unknown]
  - Abdominal pain upper [Unknown]
